FAERS Safety Report 20016173 (Version 1)
Quarter: 2021Q4

REPORT INFORMATION
  Report Type: Spontaneous
  Country: US (occurrence: None)
  Receive Date: 20211102
  Receipt Date: 20211102
  Transmission Date: 20220303
  Serious: No
  Sender: FDA-Public Use
  Company Number: None

PATIENT
  Age: 83 Year
  Sex: Female
  Weight: 55.34 kg

DRUGS (14)
  1. PROMACTA [Suspect]
     Active Substance: ELTROMBOPAG OLAMINE
     Indication: Myelodysplastic syndrome
     Dosage: FREQUENCY : DAILY;?
     Route: 048
     Dates: start: 20210930
  2. VITAMIN B12 [Concomitant]
     Active Substance: CYANOCOBALAMIN
  3. VITAMIN D3 [Concomitant]
     Active Substance: CHOLECALCIFEROL
  4. VITAMIN C [Concomitant]
     Active Substance: ASCORBIC ACID
  5. MEMANTINE [Concomitant]
     Active Substance: MEMANTINE
  6. SEROQUEL [Concomitant]
     Active Substance: QUETIAPINE FUMARATE
  7. LORAZEPAM [Concomitant]
     Active Substance: LORAZEPAM
  8. MUCINEX [Concomitant]
     Active Substance: GUAIFENESIN
  9. PREDNISONE [Concomitant]
     Active Substance: PREDNISONE
  10. STOOL SOFTENER (DOCUSATE) [Concomitant]
     Active Substance: DOCUSATE
  11. LEVOTHYROXINE [Concomitant]
     Active Substance: LEVOTHYROXINE
  12. CALCIUM [Concomitant]
     Active Substance: CALCIUM
  13. VITAMINS [Concomitant]
     Active Substance: VITAMINS
  14. DULOXETINE [Concomitant]
     Active Substance: DULOXETINE

REACTIONS (1)
  - Acute myeloid leukaemia [None]
